FAERS Safety Report 7238639-0 (Version None)
Quarter: 2011Q1

REPORT INFORMATION
  Report Type: 
  Country: None (occurrence: None)
  Receive Date: 20110121
  Receipt Date: 20110113
  Transmission Date: 20110831
  Serious: No
  Sender: FDA-Public Use
  Company Number: US-B.I. PHARMACEUTICALS,INC./RIDGEFIELD-2011-BP-01216BP

PATIENT
  Age: 79 Year
  Sex: Male

DRUGS (2)
  1. PRILOSEC [Concomitant]
     Indication: OESOPHAGEAL SPASM
     Route: 048
  2. PRADAXA [Suspect]
     Indication: ATRIAL FIBRILLATION
     Dosage: 300 MG
     Route: 048
     Dates: start: 20101214

REACTIONS (1)
  - SKIN DISCOLOURATION [None]
